FAERS Safety Report 10220014 (Version 1)
Quarter: 2014Q1

REPORT INFORMATION
  Report Type: Spontaneous
  Country: US (occurrence: None)
  Receive Date: 20140306
  Receipt Date: 20140306
  Transmission Date: 20141002
  Serious: Yes (Other)
  Sender: FDA-Public Use
  Company Number: 163-21880-13070740

PATIENT
  Age: 73 Year
  Sex: Female
  Weight: 64.4 kg

DRUGS (23)
  1. REVLIMID (LENALIDOMIDE) (5 MILLIGRAM, CAPSULES) [Suspect]
     Indication: 5Q MINUS SYNDROME
     Route: 048
     Dates: start: 20110410
  2. CYMBALTA [Concomitant]
  3. JANUVIA (SITAGLIPTIN PHOSPHATE) (TABLETS) [Concomitant]
  4. LYRICA (PREGABALIN) (CAPSULES) [Concomitant]
  5. TRAMADOL HCL (TRAMADOL HYDROCHLORIDE) (TABLETS) [Concomitant]
  6. CARBIDOPA/LEVODOPA (SINEMET) (TABLETS) [Concomitant]
  7. ASPIRIN (ACETYLSALICYLIC ACID) (TABLETS) [Concomitant]
  8. MULTIVITAMINS (MULTIVITAMINS) (TABLETS) [Concomitant]
  9. METHYLPREDNISOLONE (METHYLPREDNISOLONE) (TABLETS) [Concomitant]
  10. VITAMIN C (ASCORBIC ACID) (TABLETS) [Concomitant]
  11. CALCIUM-MAGNESIUM-ZINC (CALCIUM MAGNESIUM ZINC) (TABLETS) [Concomitant]
  12. FISH OIL (FISH OIL) (CAPSULES) [Concomitant]
  13. VESICARE (SOLIFENACIN SUCCINATE) (TABLETS) [Concomitant]
  14. ALPHA LIPOIC ACID (THIOCTIC ACID) (CAPSULES) [Concomitant]
  15. OXYCONTIN (OXYCODONE HYDROCHLORIDE) (TABLETS) [Concomitant]
  16. GEMFIBROZIL (GEMFIBROZIL) (TABLETS) [Concomitant]
  17. ALENDRONATE SODIUM (ALENDRONAE SODIUM) (TABLETS) [Concomitant]
  18. SIMVASTATIN (SIMVASTATIN) (TABLETS) [Concomitant]
  19. METFORMIN HCL (METFORMIN HYDROCHLORIDE) (TABLETS) [Concomitant]
  20. LISINOPRIL (LISINOPRIL) (TABLETS) [Concomitant]
  21. GLIPIZIDE (GLIPIZIDE) (TABLETS) [Concomitant]
  22. VITAMIN D (ERGOCALCIFEROL) (CHEWABLE TABLET) [Concomitant]
  23. FERROUS SULFATE (FERROUS SULFATE) (TABLETS) [Concomitant]

REACTIONS (4)
  - Drug dose omission [None]
  - Dyspnoea [None]
  - Malaise [None]
  - Fatigue [None]
